FAERS Safety Report 7169622-1 (Version None)
Quarter: 2010Q4

REPORT INFORMATION
  Report Type: 
  Country: None (occurrence: None)
  Receive Date: 20101217
  Receipt Date: 20101209
  Transmission Date: 20110411
  Serious: Yes (Other)
  Sender: FDA-Public Use
  Company Number: US-US-EMD SERONO, INC.-7031539

PATIENT
  Sex: Female

DRUGS (2)
  1. REBIF [Suspect]
     Indication: MULTIPLE SCLEROSIS
     Route: 058
  2. INSULIN [Concomitant]
     Indication: DIABETES MELLITUS
     Dates: end: 20100101

REACTIONS (2)
  - BLOOD GLUCOSE ABNORMAL [None]
  - PNEUMONIA [None]
